FAERS Safety Report 6130832-3 (Version None)
Quarter: 2009Q1

REPORT INFORMATION
  Report Type: 
  Country: None (occurrence: None)
  Receive Date: 20090325
  Receipt Date: 20090323
  Transmission Date: 20090719
  Serious: Yes (Life-Threatening, Hospitalization)
  Sender: FDA-Public Use
  Company Number: ES-BAYER-200916786GPV

PATIENT
  Age: 72 Year
  Sex: Male

DRUGS (5)
  1. NEXAVAR [Suspect]
     Indication: HEPATIC NEOPLASM MALIGNANT
     Dosage: TOTAL DAILY DOSE: 600 MG  UNIT DOSE: 200 MG
     Route: 048
     Dates: start: 20080101, end: 20090212
  2. REPAGLINIDE [Concomitant]
     Indication: TYPE 2 DIABETES MELLITUS
     Dosage: TOTAL DAILY DOSE: 2 MG
     Route: 048
     Dates: start: 20030101
  3. QUINAPRIL [Concomitant]
     Indication: BLOOD PRESSURE INCREASED
     Dosage: TOTAL DAILY DOSE: 40 MG
     Route: 048
     Dates: end: 20090212
  4. AMLODIPINO [Concomitant]
     Indication: BLOOD PRESSURE INCREASED
     Dosage: TOTAL DAILY DOSE: 2.5 MG
     Route: 048
  5. TAMSULOSIN HCL [Concomitant]
     Indication: BENIGN PROSTATIC HYPERPLASIA
     Dosage: TOTAL DAILY DOSE: 0.4 MG
     Route: 048

REACTIONS (1)
  - ACUTE CORONARY SYNDROME [None]
